FAERS Safety Report 6745612-5 (Version None)
Quarter: 2010Q2

REPORT INFORMATION
  Report Type: 
  Country: None (occurrence: None)
  Receive Date: 20100528
  Receipt Date: 20100518
  Transmission Date: 20101027
  Serious: Yes (Death)
  Sender: FDA-Public Use
  Company Number: AU-WYE-H15175710

PATIENT
  Age: 32 Year
  Sex: Female

DRUGS (6)
  1. EFFEXOR [Suspect]
     Dosage: UNKNOWN
  2. ETHANOL [Interacting]
     Dosage: UNKNOWN
  3. PARACETAMOL [Interacting]
     Dosage: UNKNOWN
  4. DEXTROPROPOXYPHENE [Interacting]
     Dosage: UNKNOWN
  5. TRAMADOL HCL [Interacting]
     Dosage: UNKNOWN
  6. DIAZEPAM [Interacting]
     Dosage: UNKNOWN

REACTIONS (5)
  - ASPIRATION [None]
  - DRUG INTERACTION [None]
  - DRUG TOXICITY [None]
  - OBSTRUCTIVE AIRWAYS DISORDER [None]
  - SEROTONIN SYNDROME [None]
